FAERS Safety Report 8846892 (Version 1)
Quarter: 2012Q4

REPORT INFORMATION
  Report Type: Spontaneous
  Country: US (occurrence: None)
  Receive Date: 20121016
  Receipt Date: 20121016
  Transmission Date: 20130627
  Serious: Yes (Hospitalization, Other)
  Sender: FDA-Public Use
  Company Number: ADR-2012-01787

PATIENT
  Sex: Male

DRUGS (2)
  1. LIORESAL INTRATHECAL (BACLOFEN INJECTION) [Suspect]
  2. LIORESAL INTRATHECAL (BACLOFEN INJECTION) [Suspect]

REACTIONS (4)
  - Hallucination [None]
  - Discomfort [None]
  - Formication [None]
  - Device failure [None]
